FAERS Safety Report 20878964 (Version 1)
Quarter: 2022Q2

REPORT INFORMATION
  Report Type: Other
  Country: US (occurrence: None)
  Receive Date: 20220526
  Receipt Date: 20220526
  Transmission Date: 20220720
  Serious: No
  Sender: FDA-Public Use
  Company Number: US-ROCHE-3101179

PATIENT
  Age: 50 Year
  Sex: Female
  Weight: 56.750 kg

DRUGS (10)
  1. OCREVUS [Suspect]
     Active Substance: OCRELIZUMAB
     Indication: Multiple sclerosis
     Route: 065
  2. TRAZODONE [Concomitant]
     Active Substance: TRAZODONE HYDROCHLORIDE
  3. VITAMIN D3 [Concomitant]
     Active Substance: CHOLECALCIFEROL
  4. OXYBUTYNIN CHLORIDE [Concomitant]
     Active Substance: OXYBUTYNIN CHLORIDE
  5. FLUTICASONE PROPIONATE [Concomitant]
     Active Substance: FLUTICASONE PROPIONATE
  6. HYDROCORTISONE [Concomitant]
     Active Substance: HYDROCORTISONE
  7. MODAFINIL [Concomitant]
     Active Substance: MODAFINIL
  8. TRAMADOL [Concomitant]
     Active Substance: TRAMADOL
  9. BACLOFEN [Concomitant]
     Active Substance: BACLOFEN
  10. TEMAZEPAM [Concomitant]
     Active Substance: TEMAZEPAM

REACTIONS (4)
  - COVID-19 [Unknown]
  - Dyspepsia [Unknown]
  - Pollakiuria [Unknown]
  - Headache [Unknown]

NARRATIVE: CASE EVENT DATE: 20220124
